FAERS Safety Report 10094021 (Version 3)
Quarter: 2014Q2

REPORT INFORMATION
  Report Type: Spontaneous
  Country: IE (occurrence: IE)
  Receive Date: 20140422
  Receipt Date: 20140612
  Transmission Date: 20141212
  Serious: Yes (Other)
  Sender: FDA-Public Use
  Company Number: IE-ROCHE-1381786

PATIENT
  Sex: Female

DRUGS (9)
  1. RIBAVIRIN [Suspect]
     Indication: PRODUCT USED FOR UNKNOWN INDICATION
     Route: 065
  2. RIBAVIRIN [Suspect]
     Route: 065
  3. RIBAVIRIN [Suspect]
     Route: 048
     Dates: start: 20140113
  4. RIBAVIRIN [Suspect]
     Route: 048
     Dates: start: 201402
  5. PEG-INTERFERON ALFA 2A [Suspect]
     Indication: PRODUCT USED FOR UNKNOWN INDICATION
     Route: 065
  6. BOCEPREVIR [Suspect]
     Indication: PRODUCT USED FOR UNKNOWN INDICATION
     Route: 065
  7. NEORECORMON [Concomitant]
  8. PERINDOPRIL [Concomitant]
  9. METOCLOPRAMIDE [Concomitant]

REACTIONS (2)
  - Blood creatinine increased [Unknown]
  - Creatinine renal clearance decreased [Unknown]
